FAERS Safety Report 19795280 (Version 1)
Quarter: 2021Q3

REPORT INFORMATION
  Report Type: Spontaneous
  Country: SK (occurrence: SK)
  Receive Date: 20210906
  Receipt Date: 20210906
  Transmission Date: 20211014
  Serious: Yes (Other)
  Sender: FDA-Public Use
  Company Number: SK-ABBVIE-21K-260-4069517-00

PATIENT
  Age: 65 Year
  Sex: Male

DRUGS (1)
  1. IMBRUVICA [Suspect]
     Active Substance: IBRUTINIB
     Indication: MANTLE CELL LYMPHOMA RECURRENT
     Route: 048
     Dates: start: 202004

REACTIONS (5)
  - Blood pressure increased [Unknown]
  - Muscle spasms [Unknown]
  - Oedema peripheral [Unknown]
  - Seizure [Unknown]
  - Abnormal loss of weight [Unknown]
